FAERS Safety Report 20096817 (Version 1)
Quarter: 2021Q4

REPORT INFORMATION
  Report Type: Spontaneous
  Country: US (occurrence: None)
  Receive Date: 20211122
  Receipt Date: 20211122
  Transmission Date: 20220303
  Serious: Yes (Other)
  Sender: FDA-Public Use
  Company Number: US-FRESENIUS KABI-FK202112690

PATIENT
  Age: 47 Year
  Sex: Female

DRUGS (16)
  1. METHOTREXATE [Suspect]
     Active Substance: METHOTREXATE
     Indication: Breast cancer
     Dosage: ON DAY 17
     Route: 037
  2. METHOTREXATE [Suspect]
     Active Substance: METHOTREXATE
     Indication: Acute leukaemia
  3. CYTARABINE [Suspect]
     Active Substance: CYTARABINE
     Indication: Breast cancer
     Dosage: 7 DAYS?ON DAY 3 AND 13
     Route: 037
  4. CYTARABINE [Suspect]
     Active Substance: CYTARABINE
     Indication: Acute leukaemia
     Dosage: ON DAY 13
     Route: 037
  5. DAUNORUBICIN [Suspect]
     Active Substance: DAUNORUBICIN
     Indication: Breast cancer
     Dosage: 3 DAYS,?ON DAY 3
     Route: 037
  6. DAUNORUBICIN [Suspect]
     Active Substance: DAUNORUBICIN
     Indication: Acute leukaemia
  7. HYDROXYUREA [Suspect]
     Active Substance: HYDROXYUREA
     Indication: Breast cancer
     Dosage: ON DAY 3
     Route: 037
  8. HYDROXYUREA [Suspect]
     Active Substance: HYDROXYUREA
     Indication: Acute leukaemia
  9. CHLORHEXIDINE GLUCONATE [Concomitant]
     Active Substance: CHLORHEXIDINE GLUCONATE
     Indication: Product used for unknown indication
     Route: 065
  10. DIPHENHYDRAMINE [Concomitant]
     Active Substance: DIPHENHYDRAMINE
     Indication: Product used for unknown indication
     Route: 065
  11. MAGNESIUM/POTASSIUM [Concomitant]
     Indication: Product used for unknown indication
     Dosage: MAGNESIUM AND POTASSIUM SUPPLEMENTS
     Route: 065
  12. MELATONIN [Concomitant]
     Active Substance: MELATONIN
     Indication: Product used for unknown indication
     Route: 065
  13. VITAMINS NOS [Concomitant]
     Active Substance: VITAMINS
     Indication: Product used for unknown indication
     Route: 065
  14. OXYCODONE [Concomitant]
     Active Substance: OXYCODONE
     Indication: Product used for unknown indication
     Route: 065
  15. ACETAMINOPHEN [Concomitant]
     Active Substance: ACETAMINOPHEN
     Indication: Product used for unknown indication
     Route: 065
  16. BENZONATATE [Concomitant]
     Active Substance: BENZONATATE
     Indication: Product used for unknown indication
     Route: 065

REACTIONS (3)
  - Febrile neutropenia [Recovering/Resolving]
  - Angiokeratoma [Recovering/Resolving]
  - Leukopenia [Recovering/Resolving]
